FAERS Safety Report 16077196 (Version 1)
Quarter: 2019Q1

REPORT INFORMATION
  Report Type: Report from Study
  Country: IT (occurrence: IT)
  Receive Date: 20190315
  Receipt Date: 20190315
  Transmission Date: 20190418
  Serious: Yes (Other)
  Sender: FDA-Public Use
  Company Number: IT-DSJP-DSE-2019-108762

PATIENT

DRUGS (4)
  1. OLPREZIDE [Suspect]
     Active Substance: HYDROCHLOROTHIAZIDE\OLMESARTAN MEDOXOMIL
     Indication: HYPERTENSION
     Route: 048
     Dates: end: 20190110
  2. OKI [Concomitant]
     Active Substance: KETOPROFEN LYSINE
     Indication: OSTEOARTHRITIS
     Dosage: UNK MG
     Route: 048
  3. PRONTALGIN                         /00109201/ [Concomitant]
     Indication: OSTEOARTHRITIS
     Dosage: UNK
     Route: 048
  4. DOBETIN                            /00056201/ [Concomitant]
     Active Substance: CYANOCOBALAMIN
     Indication: ANAEMIA
     Dosage: 20 MG/ML
     Route: 048

REACTIONS (1)
  - Syncope [Recovering/Resolving]

NARRATIVE: CASE EVENT DATE: 20190110
